FAERS Safety Report 12440534 (Version 4)
Quarter: 2016Q3

REPORT INFORMATION
  Report Type: Report from Study
  Country: FR (occurrence: FR)
  Receive Date: 20160606
  Receipt Date: 20160906
  Transmission Date: 20161109
  Serious: Yes (Hospitalization)
  Sender: FDA-Public Use
  Company Number: FR-ALLERGAN-1659023US

PATIENT
  Age: 45 Year
  Sex: Female

DRUGS (5)
  1. RIVOTRIL [Concomitant]
     Active Substance: CLONAZEPAM
     Indication: MULTIPLE SCLEROSIS
     Dosage: 15 GTT, UNK
     Route: 048
     Dates: start: 2012
  2. RUFOL [Concomitant]
     Indication: URINARY TRACT INFECTION
     Dosage: 100 MG, UNK
     Route: 048
     Dates: start: 20160510
  3. BOTULINUM TOXIN TYPE A - GENERAL (9060X) [Suspect]
     Active Substance: BOTULINUM TOXIN TYPE A
     Indication: NEUROGENIC BLADDER
     Dosage: UNK
     Route: 043
     Dates: start: 20160531, end: 20160531
  4. FLUOXETINE [Concomitant]
     Active Substance: FLUOXETINE HYDROCHLORIDE
     Indication: DEPRESSION
     Dosage: 200 MG, X2
     Route: 048
     Dates: start: 20160229
  5. CELLCEPT [Concomitant]
     Active Substance: MYCOPHENOLATE MOFETIL\MYCOPHENOLATE MOFETIL HYDROCHLORIDE
     Indication: MULTIPLE SCLEROSIS
     Dosage: 1 G, UNK
     Route: 048
     Dates: start: 2012

REACTIONS (3)
  - Pelvic pain [Recovering/Resolving]
  - Headache [Recovered/Resolved]
  - Asthenia [Recovering/Resolving]

NARRATIVE: CASE EVENT DATE: 20160531
